FAERS Safety Report 5836108-3 (Version None)
Quarter: 2008Q3

REPORT INFORMATION
  Report Type: 
  Country: None (occurrence: None)
  Receive Date: 20080806
  Receipt Date: 20080731
  Transmission Date: 20090109
  Serious: Yes (Other)
  Sender: FDA-Public Use
  Company Number: GB-ALLERGAN-0806114US

PATIENT
  Sex: Male

DRUGS (7)
  1. ALPHAGAN [Suspect]
     Indication: GLAUCOMA
     Dosage: UNK, BID
     Route: 047
     Dates: start: 20070620, end: 20080509
  2. BETOPTIC [Concomitant]
     Indication: GLAUCOMA
     Dosage: UNK, BID
     Route: 047
     Dates: start: 20070620
  3. LACRI-LUBE [Concomitant]
     Indication: DRY EYE
     Dosage: UNK, QPM
     Route: 047
  4. RABEPRAZOLE SODIUM [Concomitant]
     Indication: GASTROOESOPHAGEAL REFLUX DISEASE
     Dosage: 20 MG, QD
  5. QUININE SULPHATE [Concomitant]
     Indication: MUSCLE SPASMS
     Dosage: 300 MG, QD
  6. MOVELAT [Concomitant]
     Dosage: UNK, TID
  7. ANUSOL [Concomitant]
     Indication: HAEMORRHOIDS
     Dosage: UNK, PRN

REACTIONS (6)
  - ECTROPION [None]
  - EYE PAIN [None]
  - OCULAR HYPERAEMIA [None]
  - PUNCTATE KERATITIS [None]
  - UVEITIS [None]
  - VISION BLURRED [None]
